FAERS Safety Report 7331043-6 (Version None)
Quarter: 2011Q1

REPORT INFORMATION
  Report Type: 
  Country: None (occurrence: None)
  Receive Date: 20110304
  Receipt Date: 20110224
  Transmission Date: 20110831
  Serious: Yes (Other)
  Sender: FDA-Public Use
  Company Number: US-CEPHALON-2011000143

PATIENT
  Sex: Female
  Weight: 74 kg

DRUGS (2)
  1. HORMONES [Concomitant]
  2. NUVIGIL [Suspect]
     Route: 048
     Dates: start: 20100101

REACTIONS (2)
  - CATARACT [None]
  - VISION BLURRED [None]
